FAERS Safety Report 19972204 (Version 5)
Quarter: 2022Q1

REPORT INFORMATION
  Report Type: Report from Study
  Country: US (occurrence: US)
  Receive Date: 20211020
  Receipt Date: 20220209
  Transmission Date: 20220423
  Serious: Yes (Hospitalization, Other)
  Sender: FDA-Public Use
  Company Number: NVSC2021US232193

PATIENT
  Sex: Female

DRUGS (5)
  1. ENTRESTO [Suspect]
     Active Substance: SACUBITRIL\VALSARTAN
     Indication: Product used for unknown indication
     Dosage: 49 MG, BID (49/51 MG)
     Route: 048
  2. ENTRESTO [Suspect]
     Active Substance: SACUBITRIL\VALSARTAN
     Route: 048
  3. ENTRESTO [Suspect]
     Active Substance: SACUBITRIL\VALSARTAN
     Dosage: 200 MG, BID (97/103 MG)
     Route: 065
  4. LISINOPRIL [Suspect]
     Active Substance: LISINOPRIL
     Indication: Product used for unknown indication
     Dosage: UNK
     Route: 065
  5. COREG [Concomitant]
     Active Substance: CARVEDILOL
     Indication: Product used for unknown indication
     Dosage: 1 DOSAGE FORM, BID
     Route: 048
     Dates: start: 20190723, end: 20220121

REACTIONS (14)
  - Hypertension [Recovered/Resolved]
  - Cardiomyopathy [Unknown]
  - Type 2 diabetes mellitus [Unknown]
  - Illness [Not Recovered/Not Resolved]
  - Non-alcoholic steatohepatitis [Unknown]
  - Hypertension [Not Recovered/Not Resolved]
  - Chronic left ventricular failure [Unknown]
  - Type V hyperlipidaemia [Not Recovered/Not Resolved]
  - Chest discomfort [Unknown]
  - Pollakiuria [Unknown]
  - Palpitations [Unknown]
  - Obesity [Not Recovered/Not Resolved]
  - Sleep apnoea syndrome [Unknown]
  - Somnolence [Unknown]
